FAERS Safety Report 9524581 (Version 6)
Quarter: 2014Q2

REPORT INFORMATION
  Report Type: Spontaneous
  Country: GB (occurrence: GB)
  Receive Date: 20130916
  Receipt Date: 20140505
  Transmission Date: 20141212
  Serious: Yes (Other)
  Sender: FDA-Public Use
  Company Number: PHFR2012GB004064

PATIENT
  Age: 52 Year
  Sex: Male

DRUGS (3)
  1. CLOZARIL [Suspect]
     Indication: SCHIZOPHRENIA
     Dosage: 300 MG, UNK
     Route: 048
     Dates: start: 20010701
  2. CLOMIPRAMINE [Concomitant]
     Indication: DEPRESSION
     Dosage: 200 MG, UNK
     Route: 048
  3. SODIUM VALPROATE [Concomitant]
     Indication: CONVULSION
     Dosage: 800 MG, UNK
     Route: 048

REACTIONS (5)
  - Lung neoplasm malignant [Unknown]
  - White blood cell count increased [Not Recovered/Not Resolved]
  - Eosinophil count increased [Unknown]
  - Neutrophil count increased [Unknown]
  - Hypertension [Unknown]
